FAERS Safety Report 17305548 (Version 1)
Quarter: 2020Q1

REPORT INFORMATION
  Report Type: Spontaneous
  Country: US (occurrence: US)
  Receive Date: 20200123
  Receipt Date: 20200123
  Transmission Date: 20200409
  Serious: No
  Sender: FDA-Public Use
  Company Number: US-SHIRE-US202002352

PATIENT
  Sex: Female
  Weight: 83.9 kg

DRUGS (1)
  1. GAMMAGARD LIQUID [Suspect]
     Active Substance: HUMAN IMMUNOGLOBULIN G
     Indication: MYELODYSPLASTIC SYNDROME
     Dosage: 25 GRAM, EVERY 4 WK
     Route: 042
     Dates: start: 20130605

REACTIONS (1)
  - Nasopharyngitis [Unknown]
